FAERS Safety Report 23405580 (Version 1)
Quarter: 2024Q1

REPORT INFORMATION
  Report Type: Spontaneous
  Country: US (occurrence: US)
  Receive Date: 20240116
  Receipt Date: 20240116
  Transmission Date: 20240410
  Serious: No
  Sender: FDA-Public Use
  Company Number: US-SPECGX-T202202491

PATIENT
  Age: 22 Year
  Sex: Female
  Weight: 54 kg

DRUGS (3)
  1. HYDROMORPHONE [Suspect]
     Active Substance: HYDROMORPHONE
     Indication: Attention deficit hyperactivity disorder
     Dosage: 8 MILLIGRAM, (CONSUMED TWO PILLS)
     Route: 065
     Dates: start: 20221216, end: 202212
  2. METHYLPHENIDATE HYDROCHLORIDE [Suspect]
     Active Substance: METHYLPHENIDATE HYDROCHLORIDE
     Indication: Attention deficit hyperactivity disorder
     Dosage: 5 MILLIGRAM, 1 TO 2 PILLS PER DAY
     Route: 065
     Dates: end: 202212
  3. VALACYCLOVIR HYDROCHLORIDE [Concomitant]
     Active Substance: VALACYCLOVIR HYDROCHLORIDE
     Indication: Herpes virus infection
     Dosage: UNK
     Route: 065

REACTIONS (9)
  - Disturbance in attention [Recovered/Resolved]
  - Tremor [Recovered/Resolved]
  - Hyperhidrosis [Recovered/Resolved]
  - Nausea [Recovered/Resolved]
  - Gait disturbance [Recovered/Resolved]
  - Headache [Recovered/Resolved]
  - Wrong product administered [Unknown]
  - Product dispensing error [Unknown]
  - Accidental exposure to product [Unknown]

NARRATIVE: CASE EVENT DATE: 20221205
